FAERS Safety Report 6474791-2 (Version None)
Quarter: 2009Q4

REPORT INFORMATION
  Report Type: 
  Country: None (occurrence: None)
  Receive Date: 20091204
  Receipt Date: 20090511
  Transmission Date: 20100525
  Serious: Yes (Other)
  Sender: FDA-Public Use
  Company Number: US-ELI_LILLY_AND_COMPANY-US200902002824

PATIENT
  Sex: Female
  Weight: 52.154 kg

DRUGS (4)
  1. FORTEO [Suspect]
     Indication: OSTEOPOROSIS
     Dosage: 20 UG, DAILY (1/D)
     Dates: start: 20071019
  2. VITAMIN D [Concomitant]
     Dosage: 3000 IU, UNK
  3. PREMARIN [Concomitant]
     Dosage: 0.3 MG, DAILY (1/D)
  4. PREMARIN [Concomitant]
     Dosage: 0.625 MG, DAILY (1/D)

REACTIONS (2)
  - JOINT INJURY [None]
  - OSTEONECROSIS [None]
